FAERS Safety Report 15180162 (Version 1)
Quarter: 2018Q3

REPORT INFORMATION
  Report Type: Spontaneous
  Country: US (occurrence: US)
  Receive Date: 20180723
  Receipt Date: 20180723
  Transmission Date: 20181010
  Serious: No
  Sender: FDA-Public Use
  Company Number: US-PFIZER INC-2018293711

PATIENT
  Age: 57 Year
  Sex: Female

DRUGS (1)
  1. EUCRISA [Suspect]
     Active Substance: CRISABOROLE
     Indication: DERMATITIS
     Dosage: UNK, 2X/DAY
     Route: 061
     Dates: start: 201806, end: 201806

REACTIONS (4)
  - Skin burning sensation [Unknown]
  - Pigmentation disorder [Unknown]
  - Condition aggravated [Unknown]
  - Skin discolouration [Unknown]
